FAERS Safety Report 23925849 (Version 1)
Quarter: 2024Q2

REPORT INFORMATION
  Report Type: Spontaneous
  Country: US (occurrence: None)
  Receive Date: 20240530
  Receipt Date: 20240530
  Transmission Date: 20240716
  Serious: Yes (Hospitalization)
  Sender: FDA-Public Use
  Company Number: None

PATIENT
  Age: 57 Year
  Sex: Female
  Weight: 75.9 kg

DRUGS (1)
  1. PEMBROLIZUMAB [Suspect]
     Active Substance: PEMBROLIZUMAB
     Indication: Lip and/or oral cavity cancer
     Dosage: OTHER FREQUENCY : Q3W;?
     Route: 042

REACTIONS (3)
  - Swollen tongue [None]
  - Pyrexia [None]
  - Leukocytosis [None]

NARRATIVE: CASE EVENT DATE: 20240522
